FAERS Safety Report 26001050 (Version 3)
Quarter: 2025Q4

REPORT INFORMATION
  Report Type: Spontaneous
  Country: US (occurrence: US)
  Receive Date: 20251105
  Receipt Date: 20251114
  Transmission Date: 20260118
  Serious: Yes (Life-Threatening)
  Sender: BAUSCH AND LOMB
  Company Number: US-BAUSCH-BH-2025-014877

PATIENT
  Age: 61 Year
  Sex: Male

DRUGS (2)
  1. ATIVAN [Suspect]
     Active Substance: LORAZEPAM
     Indication: Anxiety disorder
     Route: 048
     Dates: start: 2025, end: 20251001
  2. ATIVAN [Suspect]
     Active Substance: LORAZEPAM
     Dosage: 4 TIMES A DAY
     Route: 048
     Dates: start: 1984, end: 202507

REACTIONS (14)
  - Anxiety [Unknown]
  - Disease recurrence [Unknown]
  - Panic attack [Unknown]
  - Condition aggravated [Unknown]
  - Fatigue [Unknown]
  - Sleep disorder [Unknown]
  - Somnolence [Unknown]
  - Feeling abnormal [Unknown]
  - Dyspnoea [Unknown]
  - Chest pain [Unknown]
  - Headache [Unknown]
  - Insurance issue [Unknown]
  - Product availability issue [Unknown]
  - Therapy interrupted [Unknown]

NARRATIVE: CASE EVENT DATE: 20250101
